FAERS Safety Report 14561496 (Version 1)
Quarter: 2018Q1

REPORT INFORMATION
  Report Type: Spontaneous
  Country: US (occurrence: US)
  Receive Date: 20180222
  Receipt Date: 20180222
  Transmission Date: 20180509
  Serious: No
  Sender: FDA-Public Use
  Company Number: US-PFIZER INC-2018070792

PATIENT
  Age: 9 Year
  Sex: Female
  Weight: 28 kg

DRUGS (3)
  1. GENOTROPIN [Suspect]
     Active Substance: SOMATROPIN
     Indication: GROWTH HORMONE DEFICIENCY
     Dosage: 1.0 MG ONE DAY AND 0.80 MG ON ALTERNATE DAY
     Route: 058
     Dates: start: 20090824
  2. GENOTROPIN [Suspect]
     Active Substance: SOMATROPIN
     Dosage: 1 MG, DAILY
     Route: 058
     Dates: end: 201611
  3. GENOTROPIN [Suspect]
     Active Substance: SOMATROPIN
     Dosage: 1.2 MG, DAILY (1.2 MG/DAY 7 DAYS/WEEK)
     Route: 058

REACTIONS (1)
  - Precocious puberty [Unknown]

NARRATIVE: CASE EVENT DATE: 201604
